FAERS Safety Report 9513001 (Version 1)
Quarter: 2013Q3

REPORT INFORMATION
  Report Type: Spontaneous
  Country: US (occurrence: US)
  Receive Date: 20130910
  Receipt Date: 20130910
  Transmission Date: 20140515
  Serious: No
  Sender: FDA-Public Use
  Company Number: US-PFIZER INC-2013254963

PATIENT
  Age: 77 Year
  Sex: Male

DRUGS (3)
  1. FLECTOR [Suspect]
     Indication: NEURALGIA
     Dosage: UNK
     Route: 062
  2. LIDOCAINE HYDROCHLORIDE [Suspect]
     Indication: NEURALGIA
     Dosage: UNK
  3. VICODIN [Suspect]
     Indication: NEURALGIA
     Dosage: UNK

REACTIONS (2)
  - Drug ineffective [Unknown]
  - Off label use [Unknown]
